FAERS Safety Report 6973974-2 (Version None)
Quarter: 2010Q3

REPORT INFORMATION
  Report Type: 
  Country: None (occurrence: None)
  Receive Date: 20100909
  Receipt Date: 20100906
  Transmission Date: 20110219
  Serious: Yes (Other)
  Sender: FDA-Public Use
  Company Number: GXKR2010DE10089

PATIENT
  Sex: Female

DRUGS (7)
  1. PARACETAMOL 1A PHARMA (NGX) [Suspect]
     Route: 048
  2. PARACETAMOL HEXAL (NGX) [Suspect]
  3. IBUHEXAL (NGX) [Suspect]
     Dosage: 20-30 TABLETS MONTHLY
     Route: 048
  4. TITRALGAN [Suspect]
     Dosage: 20-40 TABLETS MONTHLY
     Route: 048
  5. DULCOLAX [Suspect]
     Dosage: 40-60 TABLETS MONTHLY
     Route: 048
  6. METFORMIN [Concomitant]
     Indication: DIABETES MELLITUS
  7. REGULAR INSULIN [Concomitant]
     Indication: DIABETES MELLITUS

REACTIONS (1)
  - DRUG ABUSE [None]
